FAERS Safety Report 15980479 (Version 3)
Quarter: 2024Q2

REPORT INFORMATION
  Report Type: Spontaneous
  Country: JP (occurrence: JP)
  Receive Date: 20190219
  Receipt Date: 20240624
  Transmission Date: 20240716
  Serious: Yes (Hospitalization)
  Sender: FDA-Public Use
  Company Number: JP-BAYER-2019-032004

PATIENT
  Age: 83 Year
  Sex: Male
  Weight: 76 kg

DRUGS (12)
  1. XOFIGO [Suspect]
     Active Substance: RADIUM RA-223 DICHLORIDE
     Indication: Metastases to bone
     Dosage: 55 KBQ/KG, ONCE
     Route: 042
     Dates: start: 20170822, end: 20170822
  2. XOFIGO [Suspect]
     Active Substance: RADIUM RA-223 DICHLORIDE
     Indication: Hormone-refractory prostate cancer
     Dosage: 55 KBQ/KG, ONCE
     Route: 042
     Dates: start: 20170919, end: 20170919
  3. XOFIGO [Suspect]
     Active Substance: RADIUM RA-223 DICHLORIDE
     Indication: Metastases to bone
     Dosage: 55 KBQ/KG, ONCE
     Route: 042
     Dates: start: 20171017, end: 20171017
  4. XOFIGO [Suspect]
     Active Substance: RADIUM RA-223 DICHLORIDE
     Indication: Metastases to bone
     Dosage: 55 KBQ/KG, ONCE
     Route: 042
     Dates: start: 20171114, end: 20171114
  5. XOFIGO [Suspect]
     Active Substance: RADIUM RA-223 DICHLORIDE
     Indication: Metastases to bone
     Dosage: 55 KBQ/KG, ONCE
     Route: 042
     Dates: start: 20171212, end: 20171212
  6. XOFIGO [Suspect]
     Active Substance: RADIUM RA-223 DICHLORIDE
     Indication: Metastases to bone
     Dosage: 55 KBQ/KG, ONCE
     Route: 042
     Dates: start: 20180117, end: 20180117
  7. ZOLEDRONIC [Suspect]
     Active Substance: ZOLEDRONIC ACID
     Indication: Metastases to bone
     Dosage: UNK
     Dates: start: 20110920, end: 20150908
  8. BONE BUILDER [Concomitant]
  9. BICALUTAMIDE [Concomitant]
     Active Substance: BICALUTAMIDE
     Indication: Prostate cancer
     Dosage: UNK
     Route: 048
     Dates: start: 20110908, end: 20121204
  10. LEUPROLIDE ACETATE [Concomitant]
     Active Substance: ISOPROPYL ALCOHOL\LEUPROLIDE ACETATE
     Indication: Prostate cancer
     Dosage: UNK
     Route: 042
     Dates: start: 20110913
  11. FLUTAMIDE [Concomitant]
     Active Substance: FLUTAMIDE
     Indication: Prostate cancer
     Dosage: UNK
     Dates: start: 20130924, end: 20160301
  12. ENZALUTAMIDE [Concomitant]
     Active Substance: ENZALUTAMIDE
     Indication: Prostate cancer
     Dosage: UNK
     Dates: start: 20160913, end: 20181023

REACTIONS (4)
  - Osteonecrosis of jaw [Recovering/Resolving]
  - Abscess jaw [None]
  - Swelling face [None]
  - Pain in jaw [None]

NARRATIVE: CASE EVENT DATE: 20190205
